FAERS Safety Report 9519548 (Version 1)
Quarter: 2013Q3

REPORT INFORMATION
  Report Type: Spontaneous
  Country: NO (occurrence: NO)
  Receive Date: 20130912
  Receipt Date: 20130912
  Transmission Date: 20140515
  Serious: Yes (Other)
  Sender: FDA-Public Use
  Company Number: NO-JNJFOC-20130902621

PATIENT
  Age: 27 Year
  Sex: Male

DRUGS (2)
  1. REMICADE [Suspect]
     Indication: CROHN^S DISEASE
     Dosage: ONCE EVERY 6TH TO 12TH WEEK
     Route: 042
     Dates: start: 2011
  2. REMICADE [Suspect]
     Indication: CROHN^S DISEASE
     Dosage: ONCE EVERY 6TH TO 12TH WEEK
     Route: 042
     Dates: end: 201210

REACTIONS (5)
  - Headache [Unknown]
  - Memory impairment [Unknown]
  - Asthenia [Unknown]
  - Breast pain [Unknown]
  - Drug ineffective [Unknown]
